FAERS Safety Report 8808723 (Version 1)
Quarter: 2012Q4

REPORT INFORMATION
  Report Type: Spontaneous
  Country: CA (occurrence: None)
  Receive Date: 20120921
  Receipt Date: 20120921
  Transmission Date: 20130627
  Serious: Yes (Disabling)
  Sender: FDA-Public Use
  Company Number: DSA_59615_2012

PATIENT
  Age: 67 Year
  Sex: Female

DRUGS (1)
  1. METRONIDAZOLE (METRONIDAZOLE) [Suspect]
     Indication: DIVERTICULITIS
     Route: 048
     Dates: start: 20120815, end: 20120825

REACTIONS (7)
  - Disturbance in attention [None]
  - Feeling abnormal [None]
  - Balance disorder [None]
  - Feeling drunk [None]
  - Abnormal dreams [None]
  - Dizziness [None]
  - Nausea [None]
